FAERS Safety Report 8395590-0 (Version None)
Quarter: 2012Q2

REPORT INFORMATION
  Report Type: 
  Country: None (occurrence: None)
  Receive Date: 20120530
  Receipt Date: 20111017
  Transmission Date: 20120825
  Serious: No
  Sender: FDA-Public Use
  Company Number: US-GLAXOSMITHKLINE-A0949350A

PATIENT
  Age: 44 Year
  Sex: Female

DRUGS (4)
  1. ADVAIR DISKUS 100/50 [Concomitant]
  2. FLUTICASONE PROPIONATE [Concomitant]
  3. VENTOLIN [Suspect]
     Indication: BRONCHOSPASM
     Dosage: 1SPR AS REQUIRED
     Route: 055
  4. LIPITOR [Concomitant]

REACTIONS (5)
  - WHEEZING [None]
  - PRODUCT QUALITY ISSUE [None]
  - FEELING JITTERY [None]
  - DYSGEUSIA [None]
  - DRUG INEFFECTIVE [None]
